FAERS Safety Report 6494151-8 (Version None)
Quarter: 2009Q4

REPORT INFORMATION
  Report Type: 
  Country: None (occurrence: None)
  Receive Date: 20091214
  Receipt Date: 20090112
  Transmission Date: 20100525
  Serious: No
  Sender: FDA-Public Use
  Company Number: US-BRISTOL-MYERS SQUIBB COMPANY-14466916

PATIENT
  Age: 18 Year
  Sex: Male
  Weight: 104 kg

DRUGS (3)
  1. ABILIFY [Suspect]
     Indication: ASPERGER'S DISORDER
     Dosage: DOSE INCREASED TO 5MG.
     Dates: start: 20070601
  2. MULTI-VITAMIN [Concomitant]
  3. ASCORBIC ACID [Concomitant]

REACTIONS (4)
  - ANXIETY [None]
  - INCREASED APPETITE [None]
  - IRRITABILITY [None]
  - WEIGHT INCREASED [None]
